FAERS Safety Report 5671976-X (Version None)
Quarter: 2008Q1

REPORT INFORMATION
  Report Type: 
  Country: None (occurrence: None)
  Receive Date: 20080317
  Receipt Date: 20080317
  Transmission Date: 20080703
  Serious: Yes (Other)
  Sender: FDA-Public Use
  Company Number: None

PATIENT
  Age: 60 Year
  Sex: Male
  Weight: 124.2856 kg

DRUGS (1)
  1. LIPITOR [Suspect]
     Indication: BLOOD CHOLESTEROL INCREASED
     Dosage: 10MG ONCE A DAY PO
     Route: 048
     Dates: start: 20060601, end: 20070915

REACTIONS (4)
  - MOBILITY DECREASED [None]
  - MUSCLE ATROPHY [None]
  - PAIN IN EXTREMITY [None]
  - SLEEP DISORDER [None]
